FAERS Safety Report 4354043-7 (Version None)
Quarter: 2004Q2

REPORT INFORMATION
  Report Type: 
  Country: None (occurrence: None)
  Receive Date: 20040503
  Receipt Date: 20040421
  Transmission Date: 20050107
  Serious: Yes (Hospitalization)
  Sender: FDA-Public Use
  Company Number: FR-SHR-04-024626

PATIENT
  Age: 60 Year
  Sex: Male

DRUGS (5)
  1. SOTALOL(SOTALOL HYDROCHLORIDE) TABLET [Suspect]
     Indication: ATRIAL FIBRILLATION
     Dosage: SEE IMAGE
     Route: 048
     Dates: end: 20040101
  2. SOTALOL(SOTALOL HYDROCHLORIDE) TABLET [Suspect]
     Indication: ATRIAL FIBRILLATION
     Dosage: SEE IMAGE
     Route: 048
     Dates: start: 20040408, end: 20040418
  3. PREVISCAN (FLUINDIONE) [Concomitant]
  4. VITAMINE D3 B.O.N. [Concomitant]
  5. ALPHA-BLOQUANT [Concomitant]

REACTIONS (2)
  - RENAL FAILURE CHRONIC [None]
  - TORSADE DE POINTES [None]
